FAERS Safety Report 8530393-5 (Version None)
Quarter: 2012Q3

REPORT INFORMATION
  Report Type: 
  Country: None (occurrence: None)
  Receive Date: 20120723
  Receipt Date: 20120720
  Transmission Date: 20120928
  Serious: Yes (Other)
  Sender: FDA-Public Use
  Company Number: US-PFIZER INC-2012168296

PATIENT
  Sex: Male

DRUGS (3)
  1. ALPRAZOLAM [Suspect]
     Indication: ANXIETY
  2. ALPRAZOLAM [Suspect]
     Indication: PANIC DISORDER
     Dosage: 1 MG, 3X/DAY
     Route: 048
     Dates: start: 20091201
  3. ALPRAZOLAM [Suspect]
     Indication: ANXIETY DISORDER

REACTIONS (10)
  - PANIC DISORDER [None]
  - PALPITATIONS [None]
  - DIZZINESS [None]
  - TACHYPHRENIA [None]
  - ANXIETY [None]
  - NERVOUSNESS [None]
  - SEIZURE LIKE PHENOMENA [None]
  - HYPERHIDROSIS [None]
  - HEADACHE [None]
  - AGITATION [None]
